FAERS Safety Report 24940960 (Version 1)
Quarter: 2025Q1

REPORT INFORMATION
  Report Type: Report from Study
  Country: US (occurrence: US)
  Receive Date: 20250207
  Receipt Date: 20250207
  Transmission Date: 20250409
  Serious: Yes (Other)
  Sender: ALEXION PHARMACEUTICALS
  Company Number: US-ASTRAZENECA-202502USA001145US

PATIENT

DRUGS (2)
  1. OLAPARIB [Suspect]
     Active Substance: OLAPARIB
     Indication: Ovarian cancer
     Dosage: 300 MILLIGRAM, BID
  2. ZEJULA [Concomitant]
     Active Substance: NIRAPARIB
     Route: 065

REACTIONS (11)
  - Leukoplakia oral [Unknown]
  - Pain [Unknown]
  - Fatigue [Unknown]
  - Hypoaesthesia [Unknown]
  - Discomfort [Unknown]
  - Paraesthesia [Unknown]
  - Constipation [Unknown]
  - Dyschezia [Unknown]
  - Oral mucosal erythema [Unknown]
  - Rectal tenesmus [Unknown]
  - Mouth ulceration [Unknown]
